FAERS Safety Report 4388951-8 (Version None)
Quarter: 2004Q3

REPORT INFORMATION
  Report Type: 
  Country: None (occurrence: None)
  Receive Date: 20040702
  Receipt Date: 20040702
  Transmission Date: 20050211
  Serious: Yes (Disabling)
  Sender: FDA-Public Use
  Company Number: None

PATIENT
  Age: 56 Year
  Sex: Female
  Weight: 71.2147 kg

DRUGS (8)
  1. CRESTOR [Suspect]
     Indication: DYSLIPIDAEMIA
     Dosage: 10MG QD ORAL
     Route: 048
     Dates: start: 20040219, end: 20040319
  2. SLO-NIACIN 500MG [Suspect]
     Indication: DYSLIPIDAEMIA
     Dosage: 500MG  QHS W/ LOW ORAL
     Route: 048
     Dates: start: 20040325, end: 20040331
  3. LABETALOL HCL [Concomitant]
  4. DIOVAN [Concomitant]
  5. TRIAMTERENE AND HYDROCHLOROTHIAZIDE [Concomitant]
  6. ASPIRIN [Concomitant]
  7. EFFEXOR XR [Concomitant]
  8. PREVACID [Concomitant]

REACTIONS (8)
  - ALLODYNIA [None]
  - ARTHRALGIA [None]
  - BLOOD CREATINE PHOSPHOKINASE INCREASED [None]
  - DIFFICULTY IN WALKING [None]
  - MUSCLE CRAMP [None]
  - MYALGIA [None]
  - OEDEMA PERIPHERAL [None]
  - PAIN [None]
